FAERS Safety Report 23524200 (Version 1)
Quarter: 2024Q1

REPORT INFORMATION
  Report Type: Spontaneous
  Country: US (occurrence: US)
  Receive Date: 20240214
  Receipt Date: 20240214
  Transmission Date: 20240410
  Serious: No
  Sender: FDA-Public Use
  Company Number: US-FreseniusKabi-FK202402309

PATIENT
  Age: 63 Year
  Sex: Female
  Weight: 63.49 kg

DRUGS (3)
  1. HYDROMORPHONE HYDROCHLORIDE [Suspect]
     Active Substance: HYDROMORPHONE HYDROCHLORIDE
     Indication: Pain
     Dosage: USED BOLUS EIGHT TIMES PER DAY
     Route: 037
  2. BUPIVACAINE [Suspect]
     Active Substance: BUPIVACAINE
     Indication: Pain
     Dosage: USED BOLUS EIGHT TIMES PER DAY
     Route: 037
  3. PRIALT [Suspect]
     Active Substance: ZICONOTIDE ACETATE
     Indication: Pain
     Dosage: INTRATHECAL INFUSION, 100 UG/ML?USED BOLUS EIGHT TIMES PER DAY
     Route: 037

REACTIONS (4)
  - Off label use [Unknown]
  - Weight increased [Recovered/Resolved]
  - Pain [Not Recovered/Not Resolved]
  - Weight decreased [Unknown]

NARRATIVE: CASE EVENT DATE: 20220101
